FAERS Safety Report 11129115 (Version 6)
Quarter: 2019Q2

REPORT INFORMATION
  Report Type: Spontaneous
  Country: US (occurrence: US)
  Receive Date: 20150521
  Receipt Date: 20190509
  Transmission Date: 20190711
  Serious: No
  Sender: FDA-Public Use
  Company Number: US-PFIZER INC-2015166791

PATIENT
  Age: 64 Year
  Sex: Female
  Weight: 91 kg

DRUGS (4)
  1. ULTRAM [Concomitant]
     Active Substance: TRAMADOL HYDROCHLORIDE
     Indication: PAIN
     Dosage: 50 MG, 2X/DAY (TWO AT NIGHT)
  2. TYLENOL [Concomitant]
     Active Substance: ACETAMINOPHEN
     Indication: PAIN
     Dosage: UNK
  3. XELJANZ [Suspect]
     Active Substance: TOFACITINIB CITRATE
     Indication: RHEUMATOID ARTHRITIS
     Dosage: 5 MG, 2X/DAY (MORNING AND NIGHT)
     Dates: start: 20150421, end: 2016
  4. NAPROSYN [Concomitant]
     Active Substance: NAPROXEN
     Indication: PAIN
     Dosage: UNK

REACTIONS (13)
  - Osteochondritis [Recovering/Resolving]
  - Nasal congestion [Unknown]
  - Condition aggravated [Unknown]
  - Bone pain [Unknown]
  - Asthma [Unknown]
  - Fungal infection [Unknown]
  - Tooth infection [Unknown]
  - Therapeutic response unexpected [Recovering/Resolving]
  - Tremor [Unknown]
  - Chest pain [Unknown]
  - Mouth swelling [Unknown]
  - Oral infection [Unknown]
  - Epistaxis [Unknown]
